FAERS Safety Report 5691679-5 (Version None)
Quarter: 2008Q2

REPORT INFORMATION
  Report Type: 
  Country: None (occurrence: None)
  Receive Date: 20080402
  Receipt Date: 20080325
  Transmission Date: 20081010
  Serious: Yes (Hospitalization)
  Sender: FDA-Public Use
  Company Number: NL-TEVA-169313ISR

PATIENT
  Age: 21 Year

DRUGS (6)
  1. DOXORUBICIN HCL [Suspect]
  2. VINCRISTINE [Suspect]
  3. PREDNISONE [Suspect]
  4. CYCLOPHOSPHAMIDE [Suspect]
  5. RITUXIMAB [Suspect]
  6. NEUPOGEN [Concomitant]
     Indication: B-CELL LYMPHOMA

REACTIONS (1)
  - PNEUMOCYSTIS JIROVECI PNEUMONIA [None]
